FAERS Safety Report 8005128-5 (Version None)
Quarter: 2011Q4

REPORT INFORMATION
  Report Type: 
  Country: None (occurrence: None)
  Receive Date: 20111223
  Receipt Date: 20111214
  Transmission Date: 20120403
  Serious: Yes (Other)
  Sender: FDA-Public Use
  Company Number: PHHY2011FR109786

PATIENT
  Age: 77 Year
  Sex: Male

DRUGS (3)
  1. BRONCHODUAL [Concomitant]
  2. ONBREZ [Suspect]
  3. BISOPROLOL FUMARATE AND HYDROCHLOROTHIAZIDE [Concomitant]
     Dates: start: 20000101

REACTIONS (4)
  - BLOOD PRESSURE DECREASED [None]
  - PULMONARY CONGESTION [None]
  - DYSPNOEA [None]
  - CARDIOPULMONARY FAILURE [None]
